FAERS Safety Report 9236858 (Version 3)
Quarter: 2014Q1

REPORT INFORMATION
  Report Type: Spontaneous
  Country: US (occurrence: US)
  Receive Date: 20130417
  Receipt Date: 20140206
  Transmission Date: 20141002
  Serious: Yes (Death, Other)
  Sender: FDA-Public Use
  Company Number: US-BRISTOL-MYERS SQUIBB COMPANY-18766170

PATIENT
  Age: 73 Year
  Sex: Female
  Weight: 102.04 kg

DRUGS (14)
  1. BYETTA [Suspect]
     Indication: TYPE 2 DIABETES MELLITUS
     Dates: start: 20080118, end: 20100901
  2. JANUVIA [Suspect]
     Indication: TYPE 2 DIABETES MELLITUS
     Dates: start: 20110208, end: 20120119
  3. ASPIRIN [Concomitant]
  4. CELEXA [Concomitant]
  5. DIOVAN [Concomitant]
  6. LOPRESSOR [Concomitant]
  7. PRILOSEC [Concomitant]
  8. LISINOPRIL [Concomitant]
  9. DICYCLOMINE [Concomitant]
  10. VITAMIN D [Concomitant]
  11. NOVOLOG [Concomitant]
  12. TRAVATAN [Concomitant]
  13. BETIMOL [Concomitant]
  14. ARMOUR THYROID [Concomitant]

REACTIONS (2)
  - Pancreatic carcinoma [Fatal]
  - Hypersensitivity [Unknown]
